FAERS Safety Report 17812389 (Version 1)
Quarter: 2020Q2

REPORT INFORMATION
  Report Type: Report from Study
  Country: CA (occurrence: CA)
  Receive Date: 20200521
  Receipt Date: 20200521
  Transmission Date: 20200714
  Serious: Yes (Other)
  Sender: FDA-Public Use
  Company Number: CA-JNJFOC-20200152276

PATIENT
  Age: 60 Year
  Sex: Male
  Weight: 79.1 kg

DRUGS (2)
  1. STELARA [Suspect]
     Active Substance: USTEKINUMAB
     Indication: SYSTEMIC LUPUS ERYTHEMATOSUS
     Route: 042
     Dates: start: 20200129, end: 2020
  2. STELARA [Suspect]
     Active Substance: USTEKINUMAB
     Route: 058
     Dates: start: 2020

REACTIONS (5)
  - Product use in unapproved indication [Unknown]
  - Systemic lupus erythematosus [Unknown]
  - Neutropenia [Unknown]
  - Off label use [Unknown]
  - Vasculitis [Unknown]

NARRATIVE: CASE EVENT DATE: 20200129
